FAERS Safety Report 10111162 (Version 3)
Quarter: 2015Q1

REPORT INFORMATION
  Report Type: Spontaneous
  Country: US (occurrence: None)
  Receive Date: 20140421
  Receipt Date: 20150120
  Transmission Date: 20150720
  Serious: Yes (Other)
  Sender: FDA-Public Use
  Company Number: AEGR000253

PATIENT
  Age: 60 Year
  Sex: Male
  Weight: 82.5 kg

DRUGS (8)
  1. TRAZODONE [Concomitant]
     Active Substance: TRAZODONE HYDROCHLORIDE
  2. METFORMIN HCL [Suspect]
     Active Substance: METFORMIN HYDROCHLORIDE
     Indication: DIABETES MELLITUS
     Route: 048
  3. OMEPRAZOLE. [Concomitant]
     Active Substance: OMEPRAZOLE
  4. NOVOLOG [Concomitant]
     Active Substance: INSULIN ASPART
  5. VITAMIN E (VITAMIN E) [Concomitant]
  6. FISH OIL (FISH OIL) [Concomitant]
     Active Substance: FISH OIL
  7. PRAVASTATIN [Concomitant]
     Active Substance: PRAVASTATIN\PRAVASTATIN SODIUM
  8. JUXTAPID [Suspect]
     Active Substance: LOMITAPIDE MESYLATE
     Indication: TYPE IIA HYPERLIPIDAEMIA
     Route: 048
     Dates: start: 201312, end: 20140218

REACTIONS (4)
  - Diarrhoea [None]
  - Flatulence [None]
  - Headache [None]
  - Hiccups [None]

NARRATIVE: CASE EVENT DATE: 2013
